FAERS Safety Report 23895900 (Version 1)
Quarter: 2024Q2

REPORT INFORMATION
  Report Type: Spontaneous
  Country: US (occurrence: US)
  Receive Date: 20240524
  Receipt Date: 20240524
  Transmission Date: 20240716
  Serious: Yes (Disabling, Other)
  Sender: FDA-Public Use
  Company Number: US-OPELLA-2024OHG017403

PATIENT
  Sex: Male

DRUGS (1)
  1. TALC [Suspect]
     Active Substance: TALC
     Indication: Product used for unknown indication

REACTIONS (15)
  - Pleural mesothelioma malignant [Unknown]
  - Disability [Unknown]
  - Exposure to chemical pollution [Unknown]
  - Pain [Unknown]
  - Discomfort [Unknown]
  - Weight decreased [Unknown]
  - Decreased appetite [Unknown]
  - Fatigue [Unknown]
  - Somnolence [Unknown]
  - Lethargy [Unknown]
  - Dyspnoea [Unknown]
  - Dysphagia [Unknown]
  - Emotional distress [Unknown]
  - Injury [Unknown]
  - Illness [Unknown]

NARRATIVE: CASE EVENT DATE: 20231201
